FAERS Safety Report 7422864-X (Version None)
Quarter: 2011Q2

REPORT INFORMATION
  Report Type: 
  Country: None (occurrence: None)
  Receive Date: 20110414
  Receipt Date: 20110414
  Transmission Date: 20111010
  Serious: No
  Sender: FDA-Public Use
  Company Number: None

PATIENT
  Age: 66 Year
  Sex: Female
  Weight: 47.6277 kg

DRUGS (1)
  1. LEVETIRACETAM [Suspect]
     Indication: CONVULSION
     Dosage: 500 MG DAILY PO
     Route: 048
     Dates: start: 20110208, end: 20110210

REACTIONS (11)
  - APHAGIA [None]
  - FATIGUE [None]
  - DECREASED APPETITE [None]
  - BALANCE DISORDER [None]
  - DIZZINESS [None]
  - NAUSEA [None]
  - TREMOR [None]
  - SOMNOLENCE [None]
  - WEIGHT DECREASED [None]
  - DEHYDRATION [None]
  - DYSPNOEA [None]
